FAERS Safety Report 18952438 (Version 7)
Quarter: 2024Q1

REPORT INFORMATION
  Report Type: Report from Study
  Country: CA (occurrence: None)
  Receive Date: 20210301
  Receipt Date: 20240325
  Transmission Date: 20240409
  Serious: Yes (Other)
  Sender: FDA-Public Use
  Company Number: CA-PFIZER INC-2021184302

PATIENT
  Age: 81 Year
  Sex: Female

DRUGS (24)
  1. METHOTREXATE [Suspect]
     Active Substance: METHOTREXATE
     Indication: Product used for unknown indication
  2. ETANERCEPT [Suspect]
     Active Substance: ETANERCEPT
     Indication: Psoriatic arthropathy
  3. ETANERCEPT [Suspect]
     Active Substance: ETANERCEPT
  4. ETANERCEPT [Suspect]
     Active Substance: ETANERCEPT
  5. ETANERCEPT [Suspect]
     Active Substance: ETANERCEPT
  6. ERELZI [Suspect]
     Active Substance: ETANERCEPT-SZZS
     Indication: Psoriatic arthropathy
  7. ERELZI [Suspect]
     Active Substance: ETANERCEPT-SZZS
  8. ERELZI [Suspect]
     Active Substance: ETANERCEPT-SZZS
  9. ERELZI [Suspect]
     Active Substance: ETANERCEPT-SZZS
  10. ERELZI [Suspect]
     Active Substance: ETANERCEPT-SZZS
  11. ERELZI [Suspect]
     Active Substance: ETANERCEPT-SZZS
  12. ERELZI [Suspect]
     Active Substance: ETANERCEPT-SZZS
  13. ERELZI [Suspect]
     Active Substance: ETANERCEPT-SZZS
  14. ERELZI [Suspect]
     Active Substance: ETANERCEPT-SZZS
  15. ERELZI [Suspect]
     Active Substance: ETANERCEPT-SZZS
  16. ERELZI [Suspect]
     Active Substance: ETANERCEPT-SZZS
  17. ERELZI [Suspect]
     Active Substance: ETANERCEPT-SZZS
  18. ERELZI [Suspect]
     Active Substance: ETANERCEPT-SZZS
  19. CELEBREX [Concomitant]
     Active Substance: CELECOXIB
  20. IBUPROFEN [Concomitant]
     Active Substance: IBUPROFEN
  21. LEFLUNOMIDE [Concomitant]
     Active Substance: LEFLUNOMIDE
  22. PREDNISONE [Concomitant]
     Active Substance: PREDNISONE
  23. SULFASALAZINE [Concomitant]
     Active Substance: SULFASALAZINE
  24. RAMIPRIL [Concomitant]
     Active Substance: RAMIPRIL
     Indication: Hypertension

REACTIONS (11)
  - Drug ineffective [Unknown]
  - Cerebrovascular accident [Unknown]
  - Depressed mood [Unknown]
  - Dizziness [Unknown]
  - Fatigue [Unknown]
  - Influenza [Unknown]
  - Malaise [Unknown]
  - Back pain [Unknown]
  - Movement disorder [Unknown]
  - Pain in extremity [Unknown]
  - Arthralgia [Unknown]
